FAERS Safety Report 5625990-0 (Version None)
Quarter: 2008Q1

REPORT INFORMATION
  Report Type: 
  Country: None (occurrence: None)
  Receive Date: 20080211
  Receipt Date: 20080131
  Transmission Date: 20080703
  Serious: Yes (Other)
  Sender: FDA-Public Use
  Company Number: 2008JP000583

PATIENT
  Sex: Female

DRUGS (2)
  1. VESICARE(SOLIFENACIN) TABLET, UNKNOWN [Suspect]
     Indication: HYPERTONIC BLADDER
     Dosage: 5 MG, ORAL
     Route: 048
  2. ACE INHIBITOR NOS PER ORAL NOS [Concomitant]

REACTIONS (1)
  - VENTRICULAR EXTRASYSTOLES [None]
